FAERS Safety Report 10182632 (Version 1)
Quarter: 2014Q2

REPORT INFORMATION
  Report Type: Spontaneous
  Country: ES (occurrence: None)
  Receive Date: 20140516
  Receipt Date: 20140516
  Transmission Date: 20141212
  Serious: Yes (Hospitalization)
  Sender: FDA-Public Use
  Company Number: 2014ES00441

PATIENT
  Age: 47 Year
  Sex: Male

DRUGS (3)
  1. LAMOTRIGINE (LAMOTRIGINE) TABLET [Suspect]
     Indication: EPILEPSY
  2. PHENYTOIN (PHENYTOIN) [Suspect]
     Indication: EPILEPSY
  3. CLOBAZAM (CLOBAZAM) [Suspect]

REACTIONS (10)
  - Tubulointerstitial nephritis [None]
  - Nausea [None]
  - Vomiting [None]
  - Oliguria [None]
  - Abdominal pain [None]
  - Renal failure [None]
  - Hepatic function abnormal [None]
  - Renal failure acute [None]
  - Drug reaction with eosinophilia and systemic symptoms [None]
  - Haemodialysis [None]
